FAERS Safety Report 4711467-3 (Version None)
Quarter: 2005Q3

REPORT INFORMATION
  Report Type: 
  Country: None (occurrence: None)
  Receive Date: 20050711
  Receipt Date: 20050627
  Transmission Date: 20060218
  Serious: Yes (Hospitalization)
  Sender: FDA-Public Use
  Company Number: 215672

PATIENT
  Age: 16 Year
  Sex: Male
  Weight: 54.9 kg

DRUGS (4)
  1. NUTROPIN AQ [Suspect]
     Indication: GROWTH HORMONE DEFICIENCY
     Dosage: 2.4 MG,QD
     Dates: start: 20050111
  2. MEPRON [Concomitant]
  3. PREDNISONE [Concomitant]
  4. SPORANOX [Concomitant]

REACTIONS (2)
  - HERPES ZOSTER OPHTHALMIC [None]
  - KERATITIS [None]
